FAERS Safety Report 25224703 (Version 1)
Quarter: 2025Q2

REPORT INFORMATION
  Report Type: Report from Study
  Country: AR (occurrence: AR)
  Receive Date: 20250422
  Receipt Date: 20250422
  Transmission Date: 20250717
  Serious: Yes (Hospitalization)
  Sender: NOVARTIS
  Company Number: AR-002147023-NVSC2024AR233558

PATIENT
  Age: 59 Year
  Sex: Female

DRUGS (3)
  1. KISQALI [Suspect]
     Active Substance: RIBOCICLIB SUCCINATE
     Indication: Breast cancer female
     Route: 048
     Dates: start: 20240408
  2. KISQALI [Suspect]
     Active Substance: RIBOCICLIB SUCCINATE
     Indication: Breast cancer metastatic
  3. LETROZOLE [Suspect]
     Active Substance: LETROZOLE
     Indication: Breast cancer female
     Route: 048

REACTIONS (11)
  - Jaundice [Unknown]
  - Skin discolouration [Recovering/Resolving]
  - Hepatic enzyme increased [Recovering/Resolving]
  - Malaise [Recovering/Resolving]
  - Abdominal pain [Recovering/Resolving]
  - Hepatitis [Recovering/Resolving]
  - Amnesia [Unknown]
  - Hypophagia [Unknown]
  - Aphonia [Unknown]
  - Anaemia [Unknown]
  - Accident [Unknown]

NARRATIVE: CASE EVENT DATE: 20241128
